FAERS Safety Report 7169909-2 (Version None)
Quarter: 2010Q4

REPORT INFORMATION
  Report Type: 
  Country: None (occurrence: None)
  Receive Date: 20101217
  Receipt Date: 20101207
  Transmission Date: 20110411
  Serious: Yes (Hospitalization, Other)
  Sender: FDA-Public Use
  Company Number: US-ELI_LILLY_AND_COMPANY-US201012002942

PATIENT
  Age: 70 Year
  Sex: Male
  Weight: 69.39 kg

DRUGS (13)
  1. EFFIENT [Suspect]
     Indication: AORTIC VALVE REPLACEMENT
     Dosage: 10 MG, UNK
     Route: 065
     Dates: start: 20091202
  2. ASPIRIN [Concomitant]
     Dosage: 81 MG, DAILY (1/D)
  3. WARFARIN SODIUM [Concomitant]
     Dosage: UNK, DAILY (1/D)
  4. LISINOPRIL [Concomitant]
     Dosage: 10 MG, 2/D
  5. FAMOTIDINE [Concomitant]
     Dosage: 40 MG, DAILY (1/D)
  6. INSULIN [Concomitant]
  7. ATORVASTATIN [Concomitant]
     Dosage: 80 MG, DAILY (1/D)
  8. FERROUS SULFATE [Concomitant]
     Dosage: 325 MG, 2/D
  9. HYDROCHLOROTHIAZIDE [Concomitant]
     Dosage: 25 MG, DAILY (1/D)
  10. CARVEDILOL [Concomitant]
     Dosage: 25 MG, 2/D
  11. TAMSULOSIN [Concomitant]
     Dosage: 0.4 MG, DAILY (1/D)
  12. MEMANTINE [Concomitant]
     Dosage: 5 MG, 2/D
  13. ACETAMINOPHEN [Concomitant]
     Dosage: 650 MG, AS NEEDED

REACTIONS (5)
  - BENIGN PROSTATIC HYPERPLASIA [None]
  - CONFUSIONAL STATE [None]
  - HAEMATURIA [None]
  - HAEMOGLOBIN DECREASED [None]
  - INTERNATIONAL NORMALISED RATIO INCREASED [None]
